FAERS Safety Report 20624956 (Version 2)
Quarter: 2022Q1

REPORT INFORMATION
  Report Type: Spontaneous
  Country: JP (occurrence: JP)
  Receive Date: 20220323
  Receipt Date: 20220328
  Transmission Date: 20220423
  Serious: Yes (Other)
  Sender: FDA-Public Use
  Company Number: JP-SA-2022SA088419

PATIENT
  Age: 40 Year
  Sex: Female

DRUGS (3)
  1. DOCETAXEL [Suspect]
     Active Substance: DOCETAXEL
     Indication: Metastases to abdominal cavity
     Route: 041
  2. GIMERACIL\OTERACIL\TEGAFUR [Concomitant]
     Active Substance: GIMERACIL\OTERACIL\TEGAFUR
     Indication: Metastases to abdominal cavity
     Route: 065
  3. CISPLATIN [Concomitant]
     Active Substance: CISPLATIN
     Indication: Metastases to abdominal cavity
     Route: 065

REACTIONS (4)
  - Cerebral venous sinus thrombosis [Recovering/Resolving]
  - Seizure [Recovered/Resolved]
  - Sensory disturbance [Recovering/Resolving]
  - Headache [Recovering/Resolving]
